FAERS Safety Report 9220693 (Version 1)
Quarter: 2013Q2

REPORT INFORMATION
  Report Type: Spontaneous
  Country: US (occurrence: US)
  Receive Date: 20130409
  Receipt Date: 20130409
  Transmission Date: 20140414
  Serious: No
  Sender: FDA-Public Use
  Company Number: US-009507513-1304USA001014

PATIENT
  Age: 46 Year
  Sex: Male

DRUGS (1)
  1. PROPECIA [Suspect]
     Indication: ANDROGENETIC ALOPECIA
     Dosage: UNK
     Dates: start: 1998

REACTIONS (10)
  - Cognitive disorder [Unknown]
  - Sexual dysfunction [Unknown]
  - Libido decreased [Unknown]
  - Erectile dysfunction [Unknown]
  - Semen volume decreased [Unknown]
  - Ejaculation disorder [Unknown]
  - Orgasm abnormal [Unknown]
  - Urogenital atrophy [Unknown]
  - Depression [Unknown]
  - Anxiety [Unknown]
